FAERS Safety Report 19641555 (Version 2)
Quarter: 2021Q4

REPORT INFORMATION
  Report Type: Report from Study
  Country: TW (occurrence: TW)
  Receive Date: 20210731
  Receipt Date: 20211115
  Transmission Date: 20220303
  Serious: Yes (Hospitalization)
  Sender: FDA-Public Use
  Company Number: TW-ABBVIE-21K-153-4012074-00

PATIENT
  Age: 50 Year
  Sex: Male
  Weight: 88 kg

DRUGS (6)
  1. HUMIRA [Suspect]
     Active Substance: ADALIMUMAB
     Indication: Crohn^s disease
     Route: 058
     Dates: start: 20191022
  2. FLUCONAZOLE [Suspect]
     Active Substance: FLUCONAZOLE
     Indication: Large intestine infection
     Route: 041
     Dates: start: 20210630, end: 20210701
  3. FLUCONAZOLE [Suspect]
     Active Substance: FLUCONAZOLE
     Indication: Abscess
  4. FLUCONAZOLE [Suspect]
     Active Substance: FLUCONAZOLE
     Indication: Peritonitis
  5. IMODIUM [Concomitant]
     Active Substance: LOPERAMIDE HYDROCHLORIDE
     Indication: Crohn^s disease
     Route: 048
     Dates: start: 20210919, end: 20211026
  6. PREDNISOLONE [Concomitant]
     Active Substance: PREDNISOLONE
     Indication: Crohn^s disease
     Route: 048
     Dates: start: 20210630, end: 20210723

REACTIONS (15)
  - C-reactive protein increased [Unknown]
  - Chills [Unknown]
  - Asthenia [Unknown]
  - Small intestinal perforation [Unknown]
  - Tissue infiltration [Unknown]
  - White blood cell count increased [Unknown]
  - Intestinal polyp [Unknown]
  - Large intestine infection [Recovering/Resolving]
  - Peritonitis [Recovered/Resolved]
  - Abscess intestinal [Recovered/Resolved]
  - Discomfort [Unknown]
  - Abdominal abscess [Unknown]
  - Fistula [Unknown]
  - Erythema [Unknown]
  - Swelling [Unknown]

NARRATIVE: CASE EVENT DATE: 20210630
